FAERS Safety Report 4569638-5 (Version None)
Quarter: 2005Q1

REPORT INFORMATION
  Report Type: 
  Country: None (occurrence: None)
  Receive Date: 20050201
  Receipt Date: 20050118
  Transmission Date: 20050727
  Serious: Yes (Hospitalization)
  Sender: FDA-Public Use
  Company Number: 105754ISR

PATIENT
  Age: 57 Year
  Sex: Female

DRUGS (9)
  1. METHOTREXATE [Suspect]
     Indication: NON-HODGKIN'S LYMPHOMA
     Dosage: 15 MILLIGRAM/3000 MG/M2, INTRATHECAL/INTRAVENOUS (NOS)
     Route: 037
     Dates: start: 20021023, end: 20021206
  2. METHOTREXATE [Suspect]
     Indication: NON-HODGKIN'S LYMPHOMA
     Dosage: 15 MILLIGRAM/3000 MG/M2, INTRATHECAL/INTRAVENOUS (NOS)
     Route: 037
     Dates: start: 20030106, end: 20030121
  3. DOXORUBICIN HCL [Suspect]
     Indication: NON-HODGKIN'S LYMPHOMA
     Dosage: 120 MILLIGRAM INTRAVENOUS (NOS)
     Route: 042
     Dates: start: 20030106, end: 20030121
  4. CYCLOPHOSPHAMIDE [Suspect]
     Indication: NON-HODGKIN'S LYMPHOMA
     Dosage: 1900 MILLIGRAM INTRAVENOUS (NOS)
     Route: 042
     Dates: start: 20021023, end: 20021206
  5. VINDESINE [Suspect]
     Indication: NON-HODGKIN'S LYMPHOMA
     Dosage: 3.6 MILLIGRAM INTRAVENOUS (NOS)
     Route: 042
     Dates: start: 20021023, end: 20021206
  6. BLEOMYCIN [Suspect]
     Indication: NON-HODGKIN'S LYMPHOMA
     Dosage: 10 MILLIGRAM INTRAVENOUS (NOS)
     Route: 042
     Dates: start: 20021023, end: 20021206
  7. CYTARABINE [Suspect]
     Indication: NON-HODGKIN'S LYMPHOMA
     Dosage: 75 MILLIGRAM INTRAVENOUS (NOS)
     Route: 042
     Dates: start: 20021023, end: 20021206
  8. IFOSFAMIDE [Suspect]
     Indication: NON-HODGKIN'S LYMPHOMA
     Dosage: 1500 MG/M2, INTRAVENOUS (NOS)
     Route: 042
     Dates: start: 20030401, end: 20030415
  9. ETOPOSIDE [Suspect]
     Indication: NON-HODGKIN'S LYMPHOMA
     Dosage: 300 MG/M2, INTRAVENOUS (NOS)
     Route: 042
     Dates: start: 20030204, end: 20030318

REACTIONS (8)
  - ACUTE LEUKAEMIA [None]
  - ANGINA PECTORIS [None]
  - HAEMOGLOBIN DECREASED [None]
  - INFECTION [None]
  - PLATELET COUNT DECREASED [None]
  - PYREXIA [None]
  - TRACHEITIS [None]
  - WHITE BLOOD CELL COUNT DECREASED [None]
